FAERS Safety Report 5509790-8 (Version None)
Quarter: 2007Q4

REPORT INFORMATION
  Report Type: 
  Country: None (occurrence: None)
  Receive Date: 20071107
  Receipt Date: 20071107
  Transmission Date: 20080405
  Serious: No
  Sender: FDA-Public Use
  Company Number: None

PATIENT
  Age: 59 Year
  Sex: Male

DRUGS (3)
  1. HYDROMORPHONE HCL [Suspect]
     Indication: PAIN
     Dosage: 1MG PRN SQ
     Route: 058
     Dates: start: 20070731, end: 20070801
  2. POTASSIUM CHLORIDE [Suspect]
     Indication: DIURETIC THERAPY
     Dosage: 40MBQ EVERY DAY PO
     Route: 048
     Dates: start: 20070731, end: 20070801
  3. POTASSIUM CHLORIDE [Suspect]
     Indication: SUPPLEMENTATION THERAPY
     Dosage: 40MBQ EVERY DAY PO
     Route: 048
     Dates: start: 20070731, end: 20070801

REACTIONS (4)
  - HYPERKALAEMIA [None]
  - LETHARGY [None]
  - RESPIRATORY DEPRESSION [None]
  - RESPIRATORY DISTRESS [None]
